FAERS Safety Report 5268371-4 (Version None)
Quarter: 2007Q1

REPORT INFORMATION
  Report Type: 
  Country: None (occurrence: None)
  Receive Date: 20070314
  Receipt Date: 20070314
  Transmission Date: 20070707
  Serious: Yes (Hospitalization)
  Sender: FDA-Public Use
  Company Number: None

PATIENT
  Age: 46 Year
  Sex: Male
  Weight: 103.6 kg

DRUGS (11)
  1. INVEGA [Suspect]
     Indication: ANXIETY
     Dosage: 3MG ONCE PO
     Route: 048
     Dates: start: 20070212, end: 20070213
  2. INVEGA [Suspect]
     Dosage: 6MG QAM PO
     Route: 048
     Dates: start: 20070213, end: 20070214
  3. METFORMIN HCL [Concomitant]
  4. LEXAPRO [Concomitant]
  5. ENALAPRIL MALEATE [Concomitant]
  6. LAMICTAL [Concomitant]
  7. ZOCOR [Concomitant]
  8. CLONAZEPAM [Concomitant]
  9. HUMALOG [Concomitant]
  10. LANTUS [Concomitant]
  11. APAP TAB [Concomitant]

REACTIONS (6)
  - ATRIAL FIBRILLATION [None]
  - BLOOD POTASSIUM DECREASED [None]
  - CONVULSION [None]
  - PAIN [None]
  - TONGUE BITING [None]
  - WALKING AID USER [None]
